FAERS Safety Report 9201752 (Version 2)
Quarter: 2013Q2

REPORT INFORMATION
  Report Type: Spontaneous
  Country: DE (occurrence: DE)
  Receive Date: 20130401
  Receipt Date: 20130606
  Transmission Date: 20140414
  Serious: Yes (Hospitalization, Other)
  Sender: FDA-Public Use
  Company Number: DE-JNJFOC-20130317662

PATIENT
  Age: 71 Year
  Sex: Female
  Weight: 69.84 kg

DRUGS (5)
  1. XARELTO [Suspect]
     Indication: ATRIAL FIBRILLATION
     Route: 048
     Dates: start: 201206
  2. XARELTO [Suspect]
     Indication: ATRIAL FIBRILLATION
     Route: 048
     Dates: end: 201212
  3. HYDROCHLOROTHIAZID [Suspect]
     Indication: HYPERTENSION
     Route: 048
  4. FLECAINIDE [Suspect]
     Indication: ATRIAL FIBRILLATION
     Route: 048
     Dates: start: 20120930, end: 201212
  5. MIRTAZAPINE [Suspect]
     Indication: DEPRESSION
     Route: 048
     Dates: start: 201111, end: 201212

REACTIONS (2)
  - Idiopathic pulmonary fibrosis [Unknown]
  - Respiratory failure [Unknown]
